FAERS Safety Report 13924695 (Version 2)
Quarter: 2017Q3

REPORT INFORMATION
  Report Type: Spontaneous
  Country: US (occurrence: US)
  Receive Date: 20170831
  Receipt Date: 20170920
  Transmission Date: 20171127
  Serious: No
  Sender: FDA-Public Use
  Company Number: US-LUNDBECK-DKLU2035993

PATIENT
  Sex: Female

DRUGS (1)
  1. NORTHERA [Suspect]
     Active Substance: DROXIDOPA
     Indication: PRODUCT USED FOR UNKNOWN INDICATION
     Dosage: SCHEDULE B WITH TITRATION COMPLETE
     Route: 048
     Dates: start: 20170813

REACTIONS (1)
  - Therapeutic response decreased [Unknown]
